FAERS Safety Report 17026412 (Version 1)
Quarter: 2019Q4

REPORT INFORMATION
  Report Type: Other
  Country: IL (occurrence: IL)
  Receive Date: 20191113
  Receipt Date: 20191113
  Transmission Date: 20200122
  Serious: Yes (Hospitalization)
  Sender: FDA-Public Use
  Company Number: IL-TARO PHARMACEUTICALS USA.,INC-2019SUN00621

PATIENT
  Age: 21 Year
  Sex: Female

DRUGS (1)
  1. URAMOX 250 MG TABLETS [Suspect]
     Active Substance: ACETAZOLAMIDE
     Indication: CHOLANGIOGRAM
     Dosage: UNK
     Route: 065

REACTIONS (3)
  - Hypophosphataemia [Unknown]
  - Paraesthesia [Unknown]
  - Head discomfort [Unknown]
